FAERS Safety Report 4650274-7 (Version None)
Quarter: 2005Q2

REPORT INFORMATION
  Report Type: 
  Country: None (occurrence: None)
  Receive Date: 20050428
  Receipt Date: 20050415
  Transmission Date: 20051028
  Serious: Yes (Hospitalization, Other)
  Sender: FDA-Public Use
  Company Number: KII-2005-0016064

PATIENT
  Age: 23 Month
  Sex: Male

DRUGS (2)
  1. MORPHINE SULFATE [Suspect]
     Dosage: SINGLE, ORAL
     Route: 048
     Dates: start: 20050202, end: 20050202
  2. ACETAMINOPHEN AND OXYCODONE HCL [Suspect]
     Dosage: SINGLE, ORAL
     Route: 048
     Dates: start: 20050202, end: 20050202

REACTIONS (6)
  - ACCIDENTAL EXPOSURE [None]
  - AGITATION [None]
  - DEPRESSED LEVEL OF CONSCIOUSNESS [None]
  - MIOSIS [None]
  - OXYGEN SATURATION DECREASED [None]
  - SOMNOLENCE [None]
